FAERS Safety Report 4508039-2 (Version None)
Quarter: 2004Q4

REPORT INFORMATION
  Report Type: 
  Country: None (occurrence: None)
  Receive Date: 20041123
  Receipt Date: 20030926
  Transmission Date: 20050328
  Serious: No
  Sender: FDA-Public Use
  Company Number: US-GLAXOSMITHKLINE-A0427726A

PATIENT
  Age: 50 Year
  Sex: Female
  Weight: 100 kg

DRUGS (5)
  1. WELLBUTRIN [Suspect]
     Indication: DEPRESSION
     Route: 048
     Dates: start: 20020101
  2. LAMICTAL [Suspect]
     Indication: ILL-DEFINED DISORDER
     Route: 048
  3. PREVACID [Concomitant]
     Route: 065
  4. CLARITIN [Concomitant]
  5. NAPROSYN [Concomitant]

REACTIONS (1)
  - ALOPECIA [None]
